FAERS Safety Report 18116096 (Version 4)
Quarter: 2020Q4

REPORT INFORMATION
  Report Type: Report from Study
  Country: US (occurrence: US)
  Receive Date: 20200805
  Receipt Date: 20201013
  Transmission Date: 20210113
  Serious: Yes (Death, Hospitalization)
  Sender: FDA-Public Use
  Company Number: US-EXELIXIS-CABO-20031202

PATIENT
  Sex: Female

DRUGS (2)
  1. CABOMETYX [Suspect]
     Active Substance: CABOZANTINIB S-MALATE
     Indication: RENAL CANCER
     Dosage: 60 MG, QD
     Dates: start: 20200625
  2. CABOMETYX [Suspect]
     Active Substance: CABOZANTINIB S-MALATE
     Dosage: 40 MG, QD
     Dates: start: 20200708, end: 20200819

REACTIONS (10)
  - Decreased appetite [Recovering/Resolving]
  - Pericardial effusion [Recovered/Resolved]
  - Vomiting [Recovered/Resolved]
  - Pain [Unknown]
  - Haemoptysis [Recovered/Resolved]
  - Pulmonary embolism [Recovering/Resolving]
  - Death [Fatal]
  - Rash [Unknown]
  - Asthenia [Unknown]
  - Nausea [Recovered/Resolved]
